FAERS Safety Report 6847403-3 (Version None)
Quarter: 2010Q3

REPORT INFORMATION
  Report Type: 
  Country: None (occurrence: None)
  Receive Date: 20100716
  Receipt Date: 20100703
  Transmission Date: 20110219
  Serious: Yes (Hospitalization, Other)
  Sender: FDA-Public Use
  Company Number: TR-ELI_LILLY_AND_COMPANY-TR201004001433

PATIENT
  Weight: 4.5 kg

DRUGS (4)
  1. HUMULIN R [Suspect]
     Indication: GESTATIONAL DIABETES
     Dosage: 6 IU, EACH MORNING
     Route: 064
     Dates: start: 20100201, end: 20100318
  2. HUMULIN R [Suspect]
     Dosage: 6 IU, AT NOON
     Route: 064
     Dates: start: 20100201, end: 20100318
  3. HUMULIN R [Suspect]
     Dosage: 5 IU, EACH EVENING
     Route: 064
     Dates: start: 20100201, end: 20100318
  4. HUMULIN N [Suspect]
     Indication: GESTATIONAL DIABETES
     Dosage: 8 IU, AT NIGHT
     Route: 064
     Dates: start: 20100201, end: 20100318

REACTIONS (7)
  - CARDIAC DISORDER [None]
  - DRUG EXPOSURE DURING PREGNANCY [None]
  - IMMATURE RESPIRATORY SYSTEM [None]
  - MACROSOMIA [None]
  - RENAL IMPAIRMENT NEONATAL [None]
  - RESPIRATORY DISORDER NEONATAL [None]
  - SEPSIS NEONATAL [None]
